FAERS Safety Report 7579403-2 (Version None)
Quarter: 2011Q2

REPORT INFORMATION
  Report Type: 
  Country: None (occurrence: None)
  Receive Date: 20110629
  Receipt Date: 20110622
  Transmission Date: 20111010
  Serious: Yes (Hospitalization)
  Sender: FDA-Public Use
  Company Number: US-BIOGENIDEC-2011BI023300

PATIENT
  Age: 55 Year
  Sex: Female

DRUGS (2)
  1. TYSABRI [Suspect]
     Indication: MULTIPLE SCLEROSIS
     Route: 042
     Dates: start: 20080715, end: 20100517
  2. TYSABRI [Suspect]
     Route: 042
     Dates: start: 20110303

REACTIONS (3)
  - BLOOD GLUCOSE INCREASED [None]
  - BLOOD COUNT ABNORMAL [None]
  - DIABETES MELLITUS [None]
